FAERS Safety Report 16752600 (Version 1)
Quarter: 2019Q3

REPORT INFORMATION
  Report Type: Spontaneous
  Country: IT (occurrence: IT)
  Receive Date: 20190828
  Receipt Date: 20190828
  Transmission Date: 20191005
  Serious: Yes (Other)
  Sender: FDA-Public Use
  Company Number: PHHY2019IT199000

PATIENT
  Age: 65 Year
  Sex: Male

DRUGS (4)
  1. CLADRIBINE. [Concomitant]
     Active Substance: CLADRIBINE
     Dosage: UNK
     Route: 065
     Dates: start: 201611
  2. METHYLPREDNISOLONE. [Suspect]
     Active Substance: METHYLPREDNISOLONE
     Indication: PRODUCT USED FOR UNKNOWN INDICATION
     Route: 042
  3. CLADRIBINE. [Concomitant]
     Active Substance: CLADRIBINE
     Indication: HAIRY CELL LEUKAEMIA
     Dosage: UNK
     Route: 065
     Dates: start: 201609
  4. FUROSEMIDE. [Concomitant]
     Active Substance: FUROSEMIDE
     Indication: ASCITES
     Route: 065

REACTIONS (2)
  - Acute respiratory failure [Unknown]
  - Acute pulmonary oedema [Unknown]
